FAERS Safety Report 18576621 (Version 1)
Quarter: 2020Q4

REPORT INFORMATION
  Report Type: Spontaneous
  Country: JP (occurrence: JP)
  Receive Date: 20201203
  Receipt Date: 20201203
  Transmission Date: 20210114
  Serious: Yes (Other)
  Sender: FDA-Public Use
  Company Number: JP-009507513-2011JPN004295J

PATIENT
  Age: 74 Year
  Sex: Male

DRUGS (3)
  1. 5-FU [Concomitant]
     Active Substance: FLUOROURACIL
     Indication: HEAD AND NECK CANCER
     Dosage: UNK
     Route: 065
     Dates: start: 202009
  2. KEYTRUDA [Suspect]
     Active Substance: PEMBROLIZUMAB
     Indication: HEAD AND NECK CANCER
     Dosage: 200 MILLIGRAM, Q3W
     Route: 041
     Dates: start: 202009, end: 2020
  3. CISPLATIN. [Concomitant]
     Active Substance: CISPLATIN
     Indication: HEAD AND NECK CANCER
     Dosage: UNK
     Route: 065
     Dates: start: 202009

REACTIONS (2)
  - Anaemia [Unknown]
  - Renal impairment [Unknown]

NARRATIVE: CASE EVENT DATE: 2020
